FAERS Safety Report 11467852 (Version 1)
Quarter: 2015Q3

REPORT INFORMATION
  Report Type: Spontaneous
  Country: IR (occurrence: IR)
  Receive Date: 20150908
  Receipt Date: 20150908
  Transmission Date: 20151125
  Serious: Yes (Hospitalization)
  Sender: FDA-Public Use
  Company Number: IR-SUN PHARMACEUTICAL INDUSTRIES LTD-2015R1-102653

PATIENT
  Age: 6 Year
  Sex: Male

DRUGS (1)
  1. BACLOFEN. [Suspect]
     Active Substance: BACLOFEN
     Indication: DYSURIA
     Dosage: 10 MG/KG, DAILY
     Route: 065

REACTIONS (4)
  - Hallucination, tactile [Recovered/Resolved]
  - Ataxia [Recovered/Resolved]
  - Encephalopathy [Recovered/Resolved]
  - Intention tremor [Recovered/Resolved]
